FAERS Safety Report 20377827 (Version 11)
Quarter: 2022Q3

REPORT INFORMATION
  Report Type: Report from Study
  Country: TR (occurrence: None)
  Receive Date: 20220126
  Receipt Date: 20220714
  Transmission Date: 20221026
  Serious: Yes (Hospitalization)
  Sender: FDA-Public Use
  Company Number: TR-ROCHE-3004721

PATIENT
  Age: 74 Year
  Sex: Male
  Weight: 74 kg

DRUGS (22)
  1. ATEZOLIZUMAB [Suspect]
     Active Substance: ATEZOLIZUMAB
     Indication: Non-small cell lung cancer stage III
     Dosage: DOSE LAST STUDY DRUG ADMIN PRIOR AE AND SAE 1680 MG. ON 28/DEC/2021, START DATE OF MOST RECENT DOSE
     Route: 042
     Dates: start: 20210615
  2. TIRAGOLUMAB [Suspect]
     Active Substance: TIRAGOLUMAB
     Indication: Non-small cell lung cancer stage III
     Dosage: DOSE LAST STUDY DRUG ADMIN PRIOR AE AND SAE 840 MG. ON 28/DEC/2021, START DATE OF MOST RECENT DOSE O
     Route: 042
     Dates: start: 20210615
  3. MAXIDEX [Concomitant]
     Active Substance: DEXAMETHASONE
     Indication: Macular degeneration
  4. METOPROLOL SUCCINATE [Concomitant]
     Active Substance: METOPROLOL SUCCINATE
     Indication: Arteriosclerosis coronary artery
     Route: 048
     Dates: start: 20220119, end: 20220125
  5. PRABEX [Concomitant]
  6. PIRACETAM [Concomitant]
     Active Substance: PIRACETAM
     Route: 048
     Dates: start: 20220116, end: 20220118
  7. PIRACETAM [Concomitant]
     Active Substance: PIRACETAM
     Route: 042
     Dates: start: 20220120, end: 20220125
  8. BETAHISTINE [Concomitant]
     Active Substance: BETAHISTINE
     Indication: Pleural infection
     Route: 048
     Dates: start: 20220208, end: 20220212
  9. PAROL [Concomitant]
     Active Substance: ACETAMINOPHEN
  10. ATIVAN [Concomitant]
     Active Substance: LORAZEPAM
     Route: 048
     Dates: start: 20220116, end: 20220125
  11. TRAMADOL HYDROCHLORIDE [Concomitant]
     Active Substance: TRAMADOL HYDROCHLORIDE
     Route: 042
     Dates: start: 20220116, end: 20220125
  12. OKSAPAR [Concomitant]
     Route: 042
     Dates: start: 20220116, end: 20220118
  13. OKSAPAR [Concomitant]
     Route: 042
     Dates: start: 20220120, end: 20220125
  14. PANOCER [Concomitant]
     Route: 048
     Dates: start: 20220116, end: 20220118
  15. PANOCER [Concomitant]
     Route: 048
     Dates: start: 20220120, end: 20220120
  16. PAROL [Concomitant]
     Active Substance: ACETAMINOPHEN
     Route: 042
     Dates: start: 20220116, end: 20220116
  17. LEVOFLOXACIN [Concomitant]
     Active Substance: LEVOFLOXACIN
     Route: 042
     Dates: start: 20220116, end: 20220118
  18. LEVOFLOXACIN [Concomitant]
     Active Substance: LEVOFLOXACIN
     Route: 042
     Dates: start: 20220120, end: 20220125
  19. METOPROLOL [Concomitant]
     Active Substance: METOPROLOL
     Route: 048
     Dates: start: 20220116, end: 20220117
  20. BETAHISTINE [Concomitant]
     Active Substance: BETAHISTINE
     Route: 048
     Dates: start: 20220116, end: 20220125
  21. METOCLOPRAMIDE [Concomitant]
     Active Substance: METOCLOPRAMIDE
     Route: 042
     Dates: start: 20220117, end: 20220118
  22. METOCLOPRAMIDE [Concomitant]
     Active Substance: METOCLOPRAMIDE
     Route: 042
     Dates: start: 20220120, end: 20220124

REACTIONS (2)
  - Pleural effusion [Recovered/Resolved]
  - Pleural infection [Recovered/Resolved]

NARRATIVE: CASE EVENT DATE: 20220116
